FAERS Safety Report 19713183 (Version 1)
Quarter: 2021Q3

REPORT INFORMATION
  Report Type: Spontaneous
  Country: US (occurrence: US)
  Receive Date: 20210817
  Receipt Date: 20210817
  Transmission Date: 20211014
  Serious: Yes (Disabling, Other)
  Sender: FDA-Public Use
  Company Number: None

PATIENT
  Age: 28 Year
  Sex: Female
  Weight: 56.25 kg

DRUGS (1)
  1. CAPSAICIN CREAM [Suspect]
     Active Substance: CAPSAICIN
     Route: 061

REACTIONS (9)
  - Throat irritation [None]
  - Tongue discomfort [None]
  - Pain [None]
  - Ear discomfort [None]
  - Oral discomfort [None]
  - Eye irritation [None]
  - Chest pain [None]
  - Burning sensation [None]
  - Condition aggravated [None]

NARRATIVE: CASE EVENT DATE: 20210628
